FAERS Safety Report 4380891-3 (Version None)
Quarter: 2004Q2

REPORT INFORMATION
  Report Type: 
  Country: None (occurrence: None)
  Receive Date: 20040616
  Receipt Date: 20040603
  Transmission Date: 20050107
  Serious: Yes (Other)
  Sender: FDA-Public Use
  Company Number: BE-JNJFOC-20040503985

PATIENT
  Age: 25 Year
  Sex: Female
  Weight: 80 kg

DRUGS (2)
  1. TOPAMAX [Suspect]
     Indication: EPILEPSY
     Dosage: 100 MG, 2 IN 1 DAY; ORAL
     Route: 048
     Dates: start: 20031201
  2. VALPROATE SODIUM [Suspect]
     Indication: EPILEPSY
     Dosage: 1750 MG, IN 1 DAY; ORAL
     Route: 048
     Dates: start: 19940101

REACTIONS (2)
  - PNEUMONIA BACTERIAL [None]
  - WEIGHT DECREASED [None]
